FAERS Safety Report 22065650 (Version 1)
Quarter: 2023Q1

REPORT INFORMATION
  Report Type: Spontaneous
  Country: US (occurrence: None)
  Receive Date: 20230303
  Receipt Date: 20230303
  Transmission Date: 20230417
  Serious: Yes (Death)
  Sender: FDA-Public Use
  Company Number: None

PATIENT
  Age: 45 Year
  Sex: Male

DRUGS (9)
  1. OPSUMIT [Suspect]
     Active Substance: MACITENTAN
     Indication: Pulmonary hypertension
     Dosage: FREQUENCY : DAILY;?
     Route: 048
     Dates: start: 20190212, end: 20230228
  2. TADALAFIL [Concomitant]
     Active Substance: TADALAFIL
  3. REMODULIN [Concomitant]
     Active Substance: TREPROSTINIL
  4. LEVOTHYROXINE [Concomitant]
     Active Substance: LEVOTHYROXINE
  5. BUMEX [Concomitant]
  6. POTASSIUM CHLORIDE [Concomitant]
     Active Substance: POTASSIUM CHLORIDE
  7. ALLOPURINOL [Concomitant]
     Active Substance: ALLOPURINOL
  8. METOLAZONE [Concomitant]
     Active Substance: METOLAZONE
  9. ASPIRIN [Concomitant]
     Active Substance: ASPIRIN

REACTIONS (9)
  - Palpitations [None]
  - Dyspnoea [None]
  - Weight increased [None]
  - Cardiac failure acute [None]
  - Atrial fibrillation [None]
  - Ventricular tachycardia [None]
  - Shock [None]
  - Ventricular fibrillation [None]
  - General physical health deterioration [None]

NARRATIVE: CASE EVENT DATE: 20221130
